FAERS Safety Report 15885488 (Version 1)
Quarter: 2019Q1

REPORT INFORMATION
  Report Type: Report from Study
  Country: IN (occurrence: IN)
  Receive Date: 20190129
  Receipt Date: 20190129
  Transmission Date: 20190417
  Serious: Yes (Death)
  Sender: FDA-Public Use
  Company Number: IN-ASTRAZENECA-2019SE15317

PATIENT
  Age: 69 Year
  Sex: Male

DRUGS (2)
  1. PRASUGREL. [Concomitant]
     Active Substance: PRASUGREL
  2. TICAGRELOR. [Suspect]
     Active Substance: TICAGRELOR
     Route: 048

REACTIONS (2)
  - Cerebral haemorrhage [Fatal]
  - Dyspnoea [Unknown]
